FAERS Safety Report 13423718 (Version 2)
Quarter: 2018Q4

REPORT INFORMATION
  Report Type: Spontaneous
  Country: FR (occurrence: FR)
  Receive Date: 20170410
  Receipt Date: 20181105
  Transmission Date: 20190204
  Serious: Yes (Other)
  Sender: FDA-Public Use
  Company Number: FR-PFIZER INC-2017151723

PATIENT
  Age: 25 Year
  Sex: Female

DRUGS (2)
  1. MIFEGYNE [Suspect]
     Active Substance: MIFEPRISTONE
     Indication: ABORTION INDUCED
     Dosage: 600 MG, 1X/DAY
     Route: 048
     Dates: start: 20010322, end: 20010322
  2. CYTOTEC [Suspect]
     Active Substance: MISOPROSTOL
     Indication: ABORTION INDUCED
     Dosage: 400 UG, 1X/DAY
     Route: 048
     Dates: start: 20010324, end: 20010324

REACTIONS (2)
  - Drug ineffective for unapproved indication [Unknown]
  - Uterine perforation [Unknown]

NARRATIVE: CASE EVENT DATE: 2001
